FAERS Safety Report 10039895 (Version 1)
Quarter: 2014Q1

REPORT INFORMATION
  Report Type: Spontaneous
  Country: US (occurrence: US)
  Receive Date: 20140326
  Receipt Date: 20140326
  Transmission Date: 20141002
  Serious: Yes (Hospitalization)
  Sender: FDA-Public Use
  Company Number: US-JNJFOC-20140313682

PATIENT
  Age: 16 Year
  Sex: Female
  Weight: 43.4 kg

DRUGS (4)
  1. SIMPONI [Suspect]
     Indication: CROHN^S DISEASE
     Route: 058
  2. SIMPONI [Suspect]
     Indication: CROHN^S DISEASE
     Route: 058
     Dates: start: 201307
  3. FLAGYL [Concomitant]
     Route: 065
  4. IRON [Concomitant]
     Route: 065

REACTIONS (4)
  - C-reactive protein increased [Unknown]
  - Red blood cell sedimentation rate increased [Unknown]
  - Weight decreased [Unknown]
  - Off label use [Unknown]
